FAERS Safety Report 16196424 (Version 1)
Quarter: 2019Q2

REPORT INFORMATION
  Report Type: Spontaneous
  Country: US (occurrence: US)
  Receive Date: 20190415
  Receipt Date: 20190415
  Transmission Date: 20190711
  Serious: Yes (Other)
  Sender: FDA-Public Use
  Company Number: US-LUPIN PHARMACEUTICALS INC.-2019-02337

PATIENT
  Age: 58 Year
  Sex: Female

DRUGS (2)
  1. CEFADROXIL CAPSULES USP, 500 MG [Suspect]
     Active Substance: CEFADROXIL
     Indication: PROPHYLAXIS URINARY TRACT INFECTION
     Dosage: UNK UNK, QD (STARTED ONE YEAR AGO)
     Route: 048
  2. ZANTAC [Concomitant]
     Active Substance: RANITIDINE HYDROCHLORIDE
     Indication: PRODUCT USED FOR UNKNOWN INDICATION
     Dosage: UNK
     Route: 065

REACTIONS (2)
  - Coeliac disease [Unknown]
  - Condition aggravated [Not Recovered/Not Resolved]

NARRATIVE: CASE EVENT DATE: 20190305
